FAERS Safety Report 9753899 (Version 3)
Quarter: 2015Q3

REPORT INFORMATION
  Report Type: Spontaneous
  Country: US (occurrence: US)
  Receive Date: 20131213
  Receipt Date: 20150805
  Transmission Date: 20151125
  Serious: No
  Sender: FDA-Public Use
  Company Number: US-GILEAD-2010-0027050

PATIENT
  Age: 65 Year
  Sex: Male
  Weight: 72.57 kg

DRUGS (18)
  1. BISACODYL. [Concomitant]
     Active Substance: BISACODYL
  2. LOPERAMIDE [Concomitant]
     Active Substance: LOPERAMIDE
  3. FLOLAN [Concomitant]
     Active Substance: EPOPROSTENOL SODIUM
  4. OXYGEN. [Concomitant]
     Active Substance: OXYGEN
  5. MULTIVITAMIN [Concomitant]
     Active Substance: VITAMINS
  6. LETAIRIS [Suspect]
     Active Substance: AMBRISENTAN
     Indication: PULMONARY ARTERIAL HYPERTENSION
     Route: 048
     Dates: start: 20100127
  7. FLOLAN [Concomitant]
     Active Substance: EPOPROSTENOL SODIUM
  8. METOPROLOL [Concomitant]
     Active Substance: METOPROLOL
  9. ASPIRIN LOW DOSE [Concomitant]
     Active Substance: ASPIRIN
  10. FUROSEMIDE. [Concomitant]
     Active Substance: FUROSEMIDE
  11. WARFARIN [Concomitant]
     Active Substance: WARFARIN
  12. ALPRAZOLAM. [Concomitant]
     Active Substance: ALPRAZOLAM
  13. NASONEX [Concomitant]
     Active Substance: MOMETASONE FUROATE
  14. OXYCODONE [Concomitant]
     Active Substance: OXYCODONE
  15. CALCIUM CITRATE [Concomitant]
     Active Substance: CALCIUM CITRATE
  16. OMEPRAZOLE. [Concomitant]
     Active Substance: OMEPRAZOLE
  17. FOLIC ACID. [Concomitant]
     Active Substance: FOLIC ACID
  18. SODIUM CHLORIDE. [Concomitant]
     Active Substance: SODIUM CHLORIDE

REACTIONS (2)
  - Hypotension [Unknown]
  - Tremor [Unknown]
